FAERS Safety Report 18823893 (Version 3)
Quarter: 2021Q1

REPORT INFORMATION
  Report Type: Spontaneous
  Country: TW (occurrence: TW)
  Receive Date: 20210201
  Receipt Date: 20210217
  Transmission Date: 20210419
  Serious: Yes (Life-Threatening, Other)
  Sender: FDA-Public Use
  Company Number: TW-SA-2021SA029256

PATIENT
  Age: 65 Year
  Sex: Male
  Weight: 62.6 kg

DRUGS (25)
  1. PRIMPERAN [Concomitant]
     Active Substance: METOCLOPRAMIDE HYDROCHLORIDE
     Indication: IMPAIRED GASTRIC EMPTYING
     Dosage: 10 MG
     Route: 042
     Dates: start: 20210118, end: 20210118
  2. HYDROCORTISONE. [Concomitant]
     Active Substance: HYDROCORTISONE
     Dosage: 100 MG
     Route: 065
     Dates: start: 20210118, end: 20210118
  3. ATROPINE SULFATE. [Concomitant]
     Active Substance: ATROPINE SULFATE
     Dosage: 0.4 MG
     Route: 042
     Dates: start: 20210118, end: 20210118
  4. NOREPINEPHRINE. [Concomitant]
     Active Substance: NOREPINEPHRINE
     Dosage: 192 MCG/6ML/H
     Route: 065
     Dates: start: 20210119, end: 20210119
  5. APREPITANT. [Concomitant]
     Active Substance: APREPITANT
     Dosage: 125 MG
  6. CAMPTO [Concomitant]
     Active Substance: IRINOTECAN
     Indication: COLORECTAL CANCER
     Dosage: 171.0 MG
     Route: 042
     Dates: start: 20210118, end: 20210118
  7. PRIMPERAN [Concomitant]
     Active Substance: METOCLOPRAMIDE HYDROCHLORIDE
     Indication: GASTROOESOPHAGEAL REFLUX DISEASE
  8. SOLU?MEDROL [Concomitant]
     Active Substance: METHYLPREDNISOLONE SODIUM SUCCINATE
     Indication: ASTHMA
     Dosage: 80 MG
     Route: 042
     Dates: start: 20210118, end: 20210118
  9. REHISTACAL B6 [Concomitant]
     Dosage: 5 ML
     Route: 065
     Dates: start: 20210118, end: 20210118
  10. NOREPINEPHRINE. [Concomitant]
     Active Substance: NOREPINEPHRINE
     Dosage: 256 MCG/8ML/H
     Route: 065
     Dates: start: 20210119, end: 20210119
  11. NOREPINEPHRINE. [Concomitant]
     Active Substance: NOREPINEPHRINE
     Dosage: 192 MCG/6ML/H
     Route: 065
     Dates: start: 20210119, end: 20210119
  12. ELOXATIN [Suspect]
     Active Substance: OXALIPLATIN
     Indication: COLORECTAL CANCER
     Dosage: 102 MG
     Route: 041
     Dates: start: 20210118, end: 20210118
  13. HOMOCLOMIN [HOMOCHLORCYCLIZINE HYDROCHLORIDE] [Concomitant]
     Indication: HYPERSENSITIVITY
  14. PRIMPERAN [Concomitant]
     Active Substance: METOCLOPRAMIDE HYDROCHLORIDE
     Indication: ANTIEMETIC SUPPORTIVE CARE
  15. ALOXI [Concomitant]
     Active Substance: PALONOSETRON HYDROCHLORIDE
     Dosage: 250 UG
     Route: 042
     Dates: start: 20210118, end: 20210118
  16. NOREPINEPHRINE. [Concomitant]
     Active Substance: NOREPINEPHRINE
     Dosage: 320 MCG/10ML/H
     Route: 065
     Dates: start: 20210119, end: 20210119
  17. NOREPINEPHRINE. [Concomitant]
     Active Substance: NOREPINEPHRINE
     Dosage: 320 MCG/10ML/H
     Route: 065
     Dates: start: 20210119, end: 20210119
  18. NOREPINEPHRINE. [Concomitant]
     Active Substance: NOREPINEPHRINE
     Dosage: 64 MCG/2ML/H
     Route: 065
     Dates: start: 20210119, end: 20210119
  19. CYRAMZA [Concomitant]
     Active Substance: RAMUCIRUMAB
     Dosage: 10 MG/ML
  20. DIPHENHYDRAMINE HYDROCHLORIDE;PHENOL [Concomitant]
     Dosage: UNK
  21. HOMOCLOMIN [HOMOCHLORCYCLIZINE HYDROCHLORIDE] [Concomitant]
     Indication: RHINITIS
     Dosage: 10 MG
     Route: 048
     Dates: start: 20210118, end: 20210118
  22. NOREPINEPHRINE. [Concomitant]
     Active Substance: NOREPINEPHRINE
     Dosage: 320 MCG/10ML/H
     Route: 065
     Dates: start: 20210118, end: 20210118
  23. NOREPINEPHRINE. [Concomitant]
     Active Substance: NOREPINEPHRINE
     Dosage: 256 MCG/8ML/H
     Route: 065
     Dates: start: 20210119, end: 20210119
  24. NOREPINEPHRINE. [Concomitant]
     Active Substance: NOREPINEPHRINE
     Dosage: 384 MCG/12ML/H
     Route: 065
     Dates: start: 20210119, end: 20210119
  25. NOREPINEPHRINE. [Concomitant]
     Active Substance: NOREPINEPHRINE
     Dosage: 128 MCG/4ML/H
     Route: 065
     Dates: start: 20210119, end: 20210119

REACTIONS (4)
  - Tachycardia [Recovered/Resolved]
  - Hypotension [Unknown]
  - Anaphylactic shock [Recovered/Resolved]
  - Loss of consciousness [Recovered/Resolved]

NARRATIVE: CASE EVENT DATE: 20210118
